FAERS Safety Report 9025503 (Version 2)
Quarter: 2013Q4

REPORT INFORMATION
  Report Type: Spontaneous
  Country: US (occurrence: US)
  Receive Date: 20130122
  Receipt Date: 20131101
  Transmission Date: 20140711
  Serious: Yes (Other)
  Sender: FDA-Public Use
  Company Number: US-ROCHE-776469

PATIENT
  Age: 33 Year
  Sex: Male
  Weight: 96.25 kg

DRUGS (3)
  1. ACCUTANE [Suspect]
     Indication: ACNE CYSTIC
     Route: 065
     Dates: start: 1995, end: 1996
  2. ACCUTANE [Suspect]
     Route: 065
  3. ACCUTANE [Suspect]
     Route: 065
     Dates: start: 19961220, end: 19970519

REACTIONS (13)
  - Colitis ulcerative [Unknown]
  - Inflammatory bowel disease [Unknown]
  - Emotional distress [Unknown]
  - Nephrolithiasis [Unknown]
  - Anxiety [Unknown]
  - Intestinal haemorrhage [Unknown]
  - Irritable bowel syndrome [Unknown]
  - Arthralgia [Unknown]
  - Lip dry [Unknown]
  - Dermatitis [Unknown]
  - Headache [Unknown]
  - Dry skin [Unknown]
  - Epistaxis [Unknown]
